FAERS Safety Report 12679550 (Version 1)
Quarter: 2016Q3

REPORT INFORMATION
  Report Type: Spontaneous
  Country: None (occurrence: None)
  Receive Date: 20160823
  Receipt Date: 20160823
  Transmission Date: 20161109
  Serious: Yes (Life-Threatening, Hospitalization, Disabling)
  Sender: FDA-Public Use
  Company Number: None

PATIENT
  Age: 64 Year
  Sex: Female
  Weight: 113 kg

DRUGS (20)
  1. VENTOLIN HFA [Concomitant]
     Active Substance: ALBUTEROL SULFATE
  2. LEVOTHYROXINE. [Concomitant]
     Active Substance: LEVOTHYROXINE
  3. RANITIDINE. [Concomitant]
     Active Substance: RANITIDINE
  4. FERROUS SULFATE. [Concomitant]
     Active Substance: FERROUS SULFATE
  5. CLOPIDOGREL [Concomitant]
     Active Substance: CLOPIDOGREL BISULFATE
  6. INVOKANA [Suspect]
     Active Substance: CANAGLIFLOZIN
     Indication: DIABETES MELLITUS
     Route: 048
  7. FLUOXETINE [Concomitant]
     Active Substance: FLUOXETINE HYDROCHLORIDE
  8. LEVETIRACETAM. [Concomitant]
     Active Substance: LEVETIRACETAM
  9. ASPIRIN. [Concomitant]
     Active Substance: ASPIRIN
  10. LAMOTRIGINE. [Concomitant]
     Active Substance: LAMOTRIGINE
  11. AMLODIPINE [Concomitant]
     Active Substance: AMLODIPINE BESYLATE
  12. SEROQUEL XR [Concomitant]
     Active Substance: QUETIAPINE FUMARATE
  13. CETIRIZINE [Concomitant]
     Active Substance: CETIRIZINE HYDROCHLORIDE
  14. ATORVASTATIN [Concomitant]
     Active Substance: ATORVASTATIN
  15. METOCLOPRAMIDE. [Concomitant]
     Active Substance: METOCLOPRAMIDE
  16. MONTELUKAST [Concomitant]
     Active Substance: MONTELUKAST SODIUM
  17. VITAMIN D3 [Concomitant]
     Active Substance: CHOLECALCIFEROL
  18. OXYBUTYNIN [Concomitant]
     Active Substance: OXYBUTYNIN
  19. PREGABALIN. [Concomitant]
     Active Substance: PREGABALIN
  20. ROPINIROLE. [Concomitant]
     Active Substance: ROPINIROLE

REACTIONS (4)
  - Hyperkalaemia [None]
  - Acidosis [None]
  - Urinary tract infection [None]
  - Acute kidney injury [None]

NARRATIVE: CASE EVENT DATE: 20160715
